FAERS Safety Report 5845693-7 (Version None)
Quarter: 2008Q3

REPORT INFORMATION
  Report Type: 
  Country: None (occurrence: None)
  Receive Date: 20080814
  Receipt Date: 20080805
  Transmission Date: 20090109
  Serious: Yes (Hospitalization, Other)
  Sender: FDA-Public Use
  Company Number: PHHY2008JP17933

PATIENT
  Sex: Female
  Weight: 55 kg

DRUGS (8)
  1. GLEEVEC [Suspect]
     Indication: GASTROINTESTINAL STROMAL TUMOUR
     Dosage: 400 MG/DAY
     Route: 048
     Dates: start: 20050609, end: 20050809
  2. GLEEVEC [Suspect]
     Dosage: 300 MG /DAY
     Route: 048
     Dates: start: 20050810, end: 20060620
  3. GLEEVEC [Suspect]
     Dosage: 300 MG/DAY
     Route: 048
     Dates: start: 20060705, end: 20070228
  4. GLEEVEC [Suspect]
     Dosage: 300 MG/DAY
     Route: 048
     Dates: start: 20070418, end: 20071127
  5. GLEEVEC [Suspect]
     Dosage: 200 MG/DAY
     Route: 048
     Dates: start: 20071225, end: 20080219
  6. OLMESARTAN MEDOXOMIL [Concomitant]
     Indication: HYPERTENSION
     Dosage: 10 MG
     Route: 048
     Dates: start: 20050609
  7. LOPERAMIDE HCL [Concomitant]
     Indication: DIARRHOEA
     Dosage: 2 MG
     Route: 048
     Dates: start: 20050713, end: 20050810
  8. ALDACTONE [Concomitant]

REACTIONS (9)
  - ATELECTASIS [None]
  - CARDIAC FAILURE [None]
  - CARDIOMEGALY [None]
  - CHEST DISCOMFORT [None]
  - COMPUTERISED TOMOGRAM ABNORMAL [None]
  - DYSPNOEA [None]
  - HYPERKALAEMIA [None]
  - PALPITATIONS [None]
  - PLEURAL EFFUSION [None]
